FAERS Safety Report 19041190 (Version 3)
Quarter: 2021Q3

REPORT INFORMATION
  Report Type: Spontaneous
  Country: GB (occurrence: GB)
  Receive Date: 20210323
  Receipt Date: 20210930
  Transmission Date: 20211014
  Serious: Yes (Life-Threatening, Hospitalization, Disabling, Other)
  Sender: FDA-Public Use
  Company Number: GB-MICRO LABS LIMITED-ML2021-00845

PATIENT
  Age: 49 Year
  Sex: Male

DRUGS (8)
  1. IBUPROFEN. [Suspect]
     Active Substance: IBUPROFEN
  2. ATORVASTATIN [Suspect]
     Active Substance: ATORVASTATIN
  3. ASPIRIN. [Suspect]
     Active Substance: ASPIRIN
  4. PARACETAMOL [Suspect]
     Active Substance: ACETAMINOPHEN
  5. LISINOPRIL. [Suspect]
     Active Substance: LISINOPRIL
     Route: 048
  6. TRAMADOL. [Suspect]
     Active Substance: TRAMADOL
  7. OMEPRAZOLE. [Suspect]
     Active Substance: OMEPRAZOLE
     Route: 048
  8. BISOPROLOL. [Suspect]
     Active Substance: BISOPROLOL FUMARATE

REACTIONS (11)
  - Colitis ischaemic [Unknown]
  - Syncope [Unknown]
  - Rectal haemorrhage [Unknown]
  - Drug interaction [Unknown]
  - Hypotension [Unknown]
  - Diarrhoea [Unknown]
  - Vomiting [Unknown]
  - Liver injury [Unknown]
  - Renal failure [Unknown]
  - Acute kidney injury [Unknown]
  - Abdominal pain [Unknown]
